FAERS Safety Report 7571420-1 (Version None)
Quarter: 2011Q2

REPORT INFORMATION
  Report Type: 
  Country: None (occurrence: None)
  Receive Date: 20110624
  Receipt Date: 20110613
  Transmission Date: 20111010
  Serious: Yes (Hospitalization)
  Sender: FDA-Public Use
  Company Number: PHHY2011IT52450

PATIENT
  Sex: Female

DRUGS (4)
  1. ZOLOFT [Concomitant]
  2. LASIX [Concomitant]
  3. ALLOPURINOL [Suspect]
     Indication: HYPERURICAEMIA
     Dosage: 300 MG, DAILY
     Route: 048
     Dates: start: 20110522, end: 20110524
  4. IRBESARTAN [Concomitant]

REACTIONS (2)
  - TOXICITY TO VARIOUS AGENTS [None]
  - TOXIC SKIN ERUPTION [None]
